FAERS Safety Report 6101946-9 (Version None)
Quarter: 2009Q1

REPORT INFORMATION
  Report Type: 
  Country: None (occurrence: None)
  Receive Date: 20090227
  Receipt Date: 20080909
  Transmission Date: 20090719
  Serious: Yes (Hospitalization)
  Sender: FDA-Public Use
  Company Number: 267656

PATIENT
  Age: 17 Year
  Sex: Male
  Weight: 65.5 kg

DRUGS (2)
  1. NUTROPIN AQ [Suspect]
     Indication: GROWTH HORMONE DEFICIENCY
     Dosage: 3.2 MG, QD, SUBCUTANEOUS
     Route: 058
     Dates: start: 20080228, end: 20080903
  2. LEVOTHYROXINE SODIUM [Concomitant]

REACTIONS (1)
  - EPIPHYSIOLYSIS [None]
